FAERS Safety Report 5721270-3 (Version None)
Quarter: 2008Q2

REPORT INFORMATION
  Report Type: 
  Country: None (occurrence: None)
  Receive Date: 20080428
  Receipt Date: 20080428
  Transmission Date: 20081010
  Serious: No
  Sender: FDA-Public Use
  Company Number: None

PATIENT
  Age: 18 Year
  Sex: Female
  Weight: 58.9676 kg

DRUGS (1)
  1. XYZAL [Suspect]
     Indication: HYPERSENSITIVITY
     Dosage: 10MG 1 QD PO
     Route: 048
     Dates: start: 20080416, end: 20080418

REACTIONS (2)
  - DIZZINESS [None]
  - SYNCOPE [None]
